FAERS Safety Report 11524160 (Version 1)
Quarter: 2015Q3

REPORT INFORMATION
  Report Type: Spontaneous
  Country: FI (occurrence: FI)
  Receive Date: 20150918
  Receipt Date: 20150918
  Transmission Date: 20151125
  Serious: Yes (Disabling, Other)
  Sender: FDA-Public Use
  Company Number: FI-TEVA-592865ISR

PATIENT
  Age: 61 Year
  Sex: Female

DRUGS (3)
  1. THYROXIN [Suspect]
     Active Substance: LEVOTHYROXINE
     Route: 048
  2. MAREVAN [Concomitant]
     Active Substance: WARFARIN SODIUM
     Route: 048
     Dates: start: 201505
  3. LETROZOLE RATIOPHARM 2,5 MG [Suspect]
     Active Substance: LETROZOLE
     Route: 048
     Dates: start: 201503

REACTIONS (5)
  - Electrocardiogram QT prolonged [Not Recovered/Not Resolved]
  - Depressed mood [Not Recovered/Not Resolved]
  - Palpitations [Recovered/Resolved]
  - Depression [Not Recovered/Not Resolved]
  - Fatigue [Not Recovered/Not Resolved]
